FAERS Safety Report 11415892 (Version 1)
Quarter: 2015Q3

REPORT INFORMATION
  Report Type: Spontaneous
  Country: US (occurrence: US)
  Receive Date: 20150825
  Receipt Date: 20150825
  Transmission Date: 20151125
  Serious: No
  Sender: FDA-Public Use
  Company Number: US-BAYER-2015-407390

PATIENT
  Age: 5 Year
  Sex: Male
  Weight: 18.14 kg

DRUGS (1)
  1. CHILDREN CLARITIN ALLERGY [Suspect]
     Active Substance: LORATADINE
     Dosage: 6 DF, ONCE
     Route: 048
     Dates: start: 20150820, end: 20150820

REACTIONS (2)
  - Accidental exposure to product by child [Unknown]
  - Failure of child resistant mechanism for pharmaceutical product [None]

NARRATIVE: CASE EVENT DATE: 20150820
